FAERS Safety Report 24238050 (Version 2)
Quarter: 2024Q3

REPORT INFORMATION
  Report Type: Spontaneous
  Country: AR (occurrence: AR)
  Receive Date: 20240822
  Receipt Date: 20240903
  Transmission Date: 20241017
  Serious: Yes (Other)
  Sender: GLAXOSMITHKLINE
  Company Number: AR-GLAXOSMITHKLINE-AR2024AMR000998

PATIENT

DRUGS (1)
  1. NUCALA [Suspect]
     Active Substance: MEPOLIZUMAB
     Indication: Asthma
     Dosage: 100 MG, 30 DAYS
     Dates: start: 20240320

REACTIONS (6)
  - Respiratory arrest [Not Recovered/Not Resolved]
  - Disorientation [Not Recovered/Not Resolved]
  - Bronchospasm [Not Recovered/Not Resolved]
  - Depression [Not Recovered/Not Resolved]
  - Thyroid mass [Not Recovered/Not Resolved]
  - Product dose omission issue [Unknown]

NARRATIVE: CASE EVENT DATE: 20240701
